FAERS Safety Report 9995648 (Version 1)
Quarter: 2014Q1

REPORT INFORMATION
  Report Type: Spontaneous
  Country: US (occurrence: None)
  Receive Date: 20140307
  Receipt Date: 20140307
  Transmission Date: 20141002
  Serious: Yes (Death)
  Sender: FDA-Public Use
  Company Number: None

PATIENT
  Sex: Male
  Weight: 74.84 kg

DRUGS (2)
  1. AMIODARONE HYDROCHLORIDE [Suspect]
     Dosage: BY MOUTH
     Dates: start: 20130322
  2. BABY ASPIRIN [Concomitant]

REACTIONS (9)
  - Pyrexia [None]
  - Fatigue [None]
  - Dizziness [None]
  - Weight decreased [None]
  - Haemorrhage [None]
  - Chills [None]
  - Lethargy [None]
  - Dyspnoea [None]
  - Toxicity to various agents [None]
